FAERS Safety Report 4705717-7 (Version None)
Quarter: 2005Q3

REPORT INFORMATION
  Report Type: 
  Country: None (occurrence: None)
  Receive Date: 20050701
  Receipt Date: 20050314
  Transmission Date: 20060218
  Serious: Yes (Death, Disabling)
  Sender: FDA-Public Use
  Company Number: JP-MERCK-0503USA02487

PATIENT
  Age: 63 Year
  Sex: Female

DRUGS (4)
  1. FOSAMAX [Suspect]
     Indication: BONE CANCER METASTATIC
     Route: 041
     Dates: start: 19990603, end: 20020711
  2. FADROZOLE HYDROCHLORIDE [Concomitant]
     Indication: METASTASES TO BONE
     Route: 048
     Dates: start: 19970206, end: 20010411
  3. ARIMIDEX [Concomitant]
     Indication: METASTASES TO BONE
     Route: 048
     Dates: start: 20010412, end: 20011107
  4. FURTULON [Concomitant]
     Indication: METASTASES TO BONE
     Route: 048
     Dates: start: 19990812, end: 20010411

REACTIONS (5)
  - BREAST CANCER METASTATIC [None]
  - IMPAIRED HEALING [None]
  - OSTEONECROSIS [None]
  - POST PROCEDURAL COMPLICATION [None]
  - TOOTH DISORDER [None]
